FAERS Safety Report 7996139-4 (Version None)
Quarter: 2011Q4

REPORT INFORMATION
  Report Type: 
  Country: None (occurrence: None)
  Receive Date: 20111220
  Receipt Date: 20111214
  Transmission Date: 20120403
  Serious: Yes (Other)
  Sender: FDA-Public Use
  Company Number: PHEH2008US04921

PATIENT
  Sex: Male

DRUGS (23)
  1. METAMUCIL-2 [Concomitant]
     Dosage: UNK UKN, BID
  2. EPHEDRINE SULFATE [Concomitant]
     Dosage: UNK UKN, UNK
  3. FENTANYL CITRATE [Concomitant]
     Dosage: 0.05 MG, UNK
  4. DIAZEPAM [Concomitant]
     Dosage: 10 MG, UNK
  5. PERCOCET [Concomitant]
     Dosage: 5MG/325 MG, UNK
  6. DIPRIVAN [Concomitant]
     Dosage: 10 MG, UNK
  7. PROMETHAZINE HYDROCHLORIDE [Concomitant]
     Dosage: 25 MG, UNK
  8. LIDOCAINE [Concomitant]
     Dosage: UNK UKN, UNK
  9. SODIUM CHLORIDE [Concomitant]
     Dosage: UNK UKN, UNK
  10. BENICAR [Concomitant]
     Dosage: 40/25 MG, QD
  11. ZANTAC [Concomitant]
     Dosage: UNK UKN, PRN
  12. PEPCID [Concomitant]
  13. ZOMETA [Suspect]
     Dosage: 4 MG, UNK
     Route: 042
     Dates: start: 20050222
  14. MIDAZOLAM [Concomitant]
     Dosage: 2 MG, UNK
  15. ATENOLOL [Concomitant]
  16. HISTRELIN [Concomitant]
  17. COLACE [Concomitant]
     Dosage: 100 MG, BID
  18. IBUPROFEN (ADVIL) [Concomitant]
  19. ROBINUL [Concomitant]
     Dosage: UNK UKN, UNK
  20. ZEMURON [Concomitant]
     Dosage: 10 MG, UNK
  21. MEPERIDINE HYDROCHLORIDE [Concomitant]
     Dosage: 50 MG, UNK
  22. CITRUCEL [Concomitant]
  23. LISINOPRIL [Concomitant]

REACTIONS (33)
  - DIABETES MELLITUS [None]
  - ERUCTATION [None]
  - HUNGER [None]
  - RENAL FAILURE ACUTE [None]
  - ORAL PAIN [None]
  - CHOLELITHIASIS [None]
  - CHOLECYSTITIS [None]
  - AORTIC VALVE INCOMPETENCE [None]
  - TRICUSPID VALVE INCOMPETENCE [None]
  - PRESYNCOPE [None]
  - METASTASES TO BONE [None]
  - MOUTH ULCERATION [None]
  - ABDOMINAL PAIN [None]
  - ORTHOSTATIC HYPOTENSION [None]
  - DILATATION ATRIAL [None]
  - PLEURAL FIBROSIS [None]
  - EXPOSED BONE IN JAW [None]
  - DYSLIPIDAEMIA [None]
  - BILE DUCT OBSTRUCTION [None]
  - CORONARY ARTERY STENOSIS [None]
  - LYMPH NODE CALCIFICATION [None]
  - ANAEMIA [None]
  - NAUSEA [None]
  - DIZZINESS [None]
  - MITRAL VALVE INCOMPETENCE [None]
  - VENTRICULAR HYPERTROPHY [None]
  - ASTHENIA [None]
  - ORAL HERPES [None]
  - LUNG NEOPLASM [None]
  - OSTEONECROSIS OF JAW [None]
  - PAIN [None]
  - SINUS BRADYCARDIA [None]
  - THYROID NEOPLASM [None]
